FAERS Safety Report 22051110 (Version 1)
Quarter: 2023Q1

REPORT INFORMATION
  Report Type: Spontaneous
  Country: ES (occurrence: ES)
  Receive Date: 20230301
  Receipt Date: 20230301
  Transmission Date: 20230417
  Serious: Yes (Hospitalization)
  Sender: FDA-Public Use
  Company Number: None

PATIENT
  Age: 83 Year
  Sex: Male

DRUGS (14)
  1. LENVIMA [Suspect]
     Active Substance: LENVATINIB
     Indication: Hepatic cancer
     Route: 048
     Dates: start: 20230110, end: 20230213
  2. OMEPRAZOLE [Concomitant]
     Active Substance: OMEPRAZOLE
     Indication: Product used for unknown indication
     Route: 048
     Dates: start: 20120222
  3. CALCIFEDIOL [Concomitant]
     Active Substance: CALCIFEDIOL
     Indication: Vitamin D deficiency
     Dosage: 0.266 MG C/30 DAYS
     Route: 048
     Dates: start: 20230126
  4. CONDROSAN [Concomitant]
     Indication: Back pain
     Route: 048
     Dates: start: 20230126
  5. FUROSEMIDE [Concomitant]
     Active Substance: FUROSEMIDE
     Indication: Product used for unknown indication
     Dates: start: 20230126
  6. ATORVASTATIN CALCIUM\EZETIMIBE [Concomitant]
     Active Substance: ATORVASTATIN CALCIUM\EZETIMIBE
     Indication: Obesity
     Dosage: 1.0 COMP C/24 H
     Route: 048
     Dates: start: 20151118
  7. ENALAPRIL [Concomitant]
     Active Substance: ENALAPRIL
     Indication: Anaemia
     Dates: start: 20230110
  8. AMLODIPINE [Concomitant]
     Active Substance: AMLODIPINE BESYLATE
     Indication: Syncope
     Route: 048
     Dates: start: 20200117
  9. PREDNISONE [Concomitant]
     Active Substance: PREDNISONE
     Indication: Anaemia
     Route: 048
     Dates: start: 20220726
  10. ASPIRIN [Concomitant]
     Active Substance: ASPIRIN
     Indication: Dermatitis
     Route: 048
     Dates: start: 20220505
  11. LEVOTHYROXINE SODIUM [Concomitant]
     Active Substance: LEVOTHYROXINE SODIUM
     Indication: Peripheral vascular disorder
     Route: 048
     Dates: start: 20220505
  12. DUTASTERIDE\TAMSULOSIN [Concomitant]
     Active Substance: DUTASTERIDE\TAMSULOSIN
     Indication: Product used for unknown indication
     Dosage: 1.0 CAPS DE
     Route: 048
     Dates: start: 20220223
  13. BISOPROLOL [Concomitant]
     Active Substance: BISOPROLOL
     Indication: Peripheral vascular disorder
     Route: 048
     Dates: start: 20100127
  14. PREGABALIN [Concomitant]
     Active Substance: PREGABALIN
     Indication: Back pain
     Route: 048
     Dates: start: 20230125, end: 20230203

REACTIONS (1)
  - Nephropathy [Unknown]

NARRATIVE: CASE EVENT DATE: 20230215
